FAERS Safety Report 6042578-0 (Version None)
Quarter: 2009Q1

REPORT INFORMATION
  Report Type: 
  Country: None (occurrence: None)
  Receive Date: 20090119
  Receipt Date: 20090114
  Transmission Date: 20090719
  Serious: Yes (Hospitalization)
  Sender: FDA-Public Use
  Company Number: US-JNJFOC-20090103299

PATIENT
  Sex: Female
  Weight: 69.4 kg

DRUGS (9)
  1. DURAGESIC-100 [Suspect]
     Route: 062
  2. DURAGESIC-100 [Suspect]
     Indication: PAIN
     Route: 062
  3. ALORA [Concomitant]
     Indication: HORMONE REPLACEMENT THERAPY
     Route: 062
  4. TESTOSTERONE [Concomitant]
     Indication: HORMONE REPLACEMENT THERAPY
     Route: 048
  5. HYDROCORTISONE [Concomitant]
     Route: 048
  6. CELEXA [Concomitant]
     Indication: DEPRESSION
     Route: 048
  7. LYRICA [Concomitant]
     Indication: PAIN
     Route: 048
  8. AMBIEN [Concomitant]
     Indication: SLEEP DISORDER THERAPY
     Route: 048
  9. VICODIN [Concomitant]
     Indication: PAIN
     Route: 048

REACTIONS (6)
  - BEDRIDDEN [None]
  - INTERVERTEBRAL DISC PROTRUSION [None]
  - MALAISE [None]
  - NEOPLASM MALIGNANT [None]
  - PAIN [None]
  - VOMITING [None]
